FAERS Safety Report 9379958 (Version 1)
Quarter: 2013Q3

REPORT INFORMATION
  Report Type: Spontaneous
  Country: US (occurrence: None)
  Receive Date: 20130701
  Receipt Date: 20130701
  Transmission Date: 20140515
  Serious: No
  Sender: FDA-Public Use
  Company Number: None

PATIENT
  Age: 58 Year
  Sex: Female
  Weight: 87 kg

DRUGS (1)
  1. LISINOPRIL [Suspect]
     Dates: start: 20130618

REACTIONS (2)
  - Swollen tongue [None]
  - Pharyngeal oedema [None]
